FAERS Safety Report 10601703 (Version 1)
Quarter: 2014Q4

REPORT INFORMATION
  Report Type: Spontaneous
  Country: US (occurrence: None)
  Receive Date: 20141120
  Receipt Date: 20141120
  Transmission Date: 20150529
  Serious: Yes (Other)
  Sender: FDA-Public Use
  Company Number: ADR-2014-02160

PATIENT
  Sex: Male

DRUGS (1)
  1. BACLOFEN INTRATHECAL [Suspect]
     Active Substance: BACLOFEN
     Indication: MUSCLE SPASTICITY

REACTIONS (5)
  - Incorrect route of drug administration [None]
  - Therapy change [None]
  - Device damage [None]
  - No therapeutic response [None]
  - Burning sensation [None]
